FAERS Safety Report 23166886 (Version 1)
Quarter: 2023Q4

REPORT INFORMATION
  Report Type: Report from Study
  Country: NL (occurrence: NL)
  Receive Date: 20231109
  Receipt Date: 20231109
  Transmission Date: 20240110
  Serious: Yes (Hospitalization, Other)
  Sender: FDA-Public Use
  Company Number: NL-AstraZeneca-2023A252947

PATIENT
  Age: 15 Month
  Sex: Male
  Weight: 6.2 kg

DRUGS (3)
  1. SYNAGIS [Suspect]
     Active Substance: PALIVIZUMAB
     Indication: Cardiac disorder
     Dosage: ONCE IN ONE MONTH
     Route: 030
     Dates: start: 20221221, end: 20230321
  2. SYNAGIS [Suspect]
     Active Substance: PALIVIZUMAB
     Dosage: MONTHLY
     Route: 030
  3. ESOMEPRAZOLE [Concomitant]
     Active Substance: ESOMEPRAZOLE
     Indication: Product used for unknown indication
     Dosage: ESOMEPRAZOLE MAGNESIUM: 10.0MG

REACTIONS (2)
  - Inguinal hernia [Unknown]
  - Nasopharyngitis [Recovered/Resolved]
